FAERS Safety Report 11746124 (Version 1)
Quarter: 2015Q4

REPORT INFORMATION
  Report Type: Spontaneous
  Country: US (occurrence: US)
  Receive Date: 20151117
  Receipt Date: 20151117
  Transmission Date: 20160304
  Serious: No
  Sender: FDA-Public Use
  Company Number: US-BIOGENIDEC-2015BI151276

PATIENT
  Age: 55 Year
  Sex: Female
  Weight: 80 kg

DRUGS (22)
  1. VITAMIN B [Concomitant]
     Active Substance: VITAMIN B
  2. DOPAMINE HCL [Concomitant]
     Active Substance: DOPAMINE HYDROCHLORIDE
  3. OXYCODONE HYDROCHLORIDE. [Concomitant]
     Active Substance: OXYCODONE HYDROCHLORIDE
  4. VITAMIN D [Concomitant]
     Active Substance: CHOLECALCIFEROL
     Dates: start: 201405
  5. GAS-X [Concomitant]
     Active Substance: DIMETHICONE
     Dates: start: 201406
  6. KLONOPIN [Concomitant]
     Active Substance: CLONAZEPAM
     Dates: start: 2005
  7. CORTICOSTEROID [Concomitant]
     Active Substance: CORTICOSTEROID NOS
  8. VICODIN ES [Concomitant]
     Active Substance: ACETAMINOPHEN\HYDROCODONE BITARTRATE
  9. ECHINACEA [Concomitant]
     Active Substance: ECHINACEA, UNSPECIFIED
  10. FISH OIL [Concomitant]
     Active Substance: FISH OIL
  11. NEXIUM [Concomitant]
     Active Substance: ESOMEPRAZOLE MAGNESIUM
  12. LYRICA [Concomitant]
     Active Substance: PREGABALIN
     Dates: start: 2004
  13. AMANTADINE [Concomitant]
     Active Substance: AMANTADINE
     Dates: start: 2006
  14. TECFIDERA [Suspect]
     Active Substance: DIMETHYL FUMARATE
     Indication: PRODUCT USED FOR UNKNOWN INDICATION
     Dates: start: 201509
  15. MELATONIN [Concomitant]
     Active Substance: MELATONIN
  16. TRIGLYCERIDES [Concomitant]
     Dates: start: 2013
  17. NORCO [Concomitant]
     Active Substance: ACETAMINOPHEN\HYDROCODONE BITARTRATE
  18. AMITRIPTYLINE HCL [Concomitant]
     Active Substance: AMITRIPTYLINE
     Dates: start: 2004
  19. AMPYRA [Concomitant]
     Active Substance: DALFAMPRIDINE
     Indication: MULTIPLE SCLEROSIS
     Route: 048
  20. CYMBALTA [Concomitant]
     Active Substance: DULOXETINE HYDROCHLORIDE
     Dates: start: 2004
  21. BACLOFEN. [Concomitant]
     Active Substance: BACLOFEN
     Dates: start: 2005
  22. CRANBERRY. [Concomitant]
     Active Substance: CRANBERRY

REACTIONS (12)
  - Peripheral swelling [Recovered/Resolved]
  - Asthenia [Recovered/Resolved]
  - Depression [Unknown]
  - General symptom [Recovered/Resolved]
  - Fall [Recovered/Resolved]
  - Anxiety [Unknown]
  - Muscular weakness [Recovered/Resolved]
  - Contusion [Recovered/Resolved]
  - Diarrhoea [Recovered/Resolved]
  - Confusional state [Recovered/Resolved]
  - Flushing [Recovered/Resolved]
  - Cough [Recovered/Resolved]
